FAERS Safety Report 10196856 (Version 1)
Quarter: 2014Q2

REPORT INFORMATION
  Report Type: Spontaneous
  Country: CO (occurrence: CO)
  Receive Date: 20140527
  Receipt Date: 20140527
  Transmission Date: 20141212
  Serious: No
  Sender: FDA-Public Use
  Company Number: CO-SA-2014SA052715

PATIENT
  Sex: Female

DRUGS (1)
  1. ARAVA [Suspect]
     Indication: SERONEGATIVE ARTHRITIS
     Route: 048
     Dates: start: 2012, end: 201404

REACTIONS (1)
  - Exposure during pregnancy [Unknown]
